FAERS Safety Report 13701408 (Version 2)
Quarter: 2017Q2

REPORT INFORMATION
  Report Type: Spontaneous
  Country: US (occurrence: US)
  Receive Date: 20170629
  Receipt Date: 20170629
  Transmission Date: 20170830
  Serious: Yes (Disabling)
  Sender: FDA-Public Use
  Company Number: US-APOTEX-2017AP013881

PATIENT
  Age: 68 Year
  Sex: Male

DRUGS (3)
  1. RASAGILINE MESYLATE TABLETS [Suspect]
     Active Substance: RASAGILINE MESYLATE
     Indication: PARKINSON^S DISEASE
     Dosage: 1 MG, EVERY MORNING
     Route: 065
  2. AMANTADINE. [Suspect]
     Active Substance: AMANTADINE HYDROCHLORIDE
     Indication: PARKINSON^S DISEASE
     Route: 065
  3. CARBIDOPA AND LEVODOPA [Suspect]
     Active Substance: CARBIDOPA\LEVODOPA
     Indication: PARKINSON^S DISEASE
     Dosage: 25MG\100MG 1.5 TABLETS AT 3-HOUR INTERVALS
     Route: 065

REACTIONS (8)
  - Medication error [Unknown]
  - On and off phenomenon [Unknown]
  - Pain [Unknown]
  - Tremor [Unknown]
  - Nocturia [Unknown]
  - Therapeutic response decreased [Unknown]
  - Dyskinesia [Unknown]
  - Dyspnoea [Unknown]
